FAERS Safety Report 8016086-1 (Version None)
Quarter: 2011Q4

REPORT INFORMATION
  Report Type: 
  Country: None (occurrence: None)
  Receive Date: 20111223
  Receipt Date: 20111207
  Transmission Date: 20120403
  Serious: Yes (Hospitalization)
  Sender: FDA-Public Use
  Company Number: 2011-5051

PATIENT
  Age: 40 Year
  Sex: Female

DRUGS (3)
  1. IPSTYL 120 MG (LANREOTIDE AUTOGEL) (LANREOTIDE) [Suspect]
     Indication: INSULINOMA
     Dosage: 120 MG (120 MG, 1 IN 28 D), SUBCUTANEOUS
     Route: 058
     Dates: start: 20080101
  2. KONAKION [Concomitant]
  3. PROGLICEM (DIAZOXIDE) [Concomitant]

REACTIONS (3)
  - SYNCOPE [None]
  - HYPOGLYCAEMIA [None]
  - INTERNATIONAL NORMALISED RATIO INCREASED [None]
